FAERS Safety Report 6838878-4 (Version None)
Quarter: 2010Q3

REPORT INFORMATION
  Report Type: 
  Country: None (occurrence: None)
  Receive Date: 20100713
  Receipt Date: 20070711
  Transmission Date: 20110219
  Serious: No
  Sender: FDA-Public Use
  Company Number: US-PFIZER INC-2007041121

PATIENT
  Sex: Male
  Weight: 54.09 kg

DRUGS (26)
  1. CHANTIX [Suspect]
     Indication: SMOKING CESSATION THERAPY
     Dates: start: 20070323
  2. XANAX [Suspect]
     Indication: ANXIETY
  3. XANAX [Suspect]
     Indication: PANIC DISORDER
  4. ZOLOFT [Suspect]
     Indication: DEPRESSION
     Dates: start: 20070301, end: 20070301
  5. IRON [Concomitant]
  6. INDERAL [Concomitant]
  7. TRAZODONE HYDROCHLORIDE [Concomitant]
  8. CLONAZEPAM [Concomitant]
  9. PERCOCET [Concomitant]
  10. OXYCONTIN [Concomitant]
  11. PROVIGIL [Concomitant]
  12. FLONASE [Concomitant]
  13. AEROBID [Concomitant]
  14. DRUG, UNSPECIFIED [Concomitant]
  15. DRUG, UNSPECIFIED [Concomitant]
  16. ATROVENT [Concomitant]
  17. REGLAN [Concomitant]
  18. ZANTAC [Concomitant]
  19. PREVACID [Concomitant]
  20. FIORINAL [Concomitant]
     Indication: MIGRAINE
  21. LEVBID [Concomitant]
     Indication: POLLAKIURIA
  22. PAXIL [Concomitant]
  23. ANDROGEL [Concomitant]
  24. CLARITIN [Concomitant]
  25. BOTOX [Concomitant]
     Indication: MIGRAINE
  26. BONIVA [Concomitant]
     Indication: OSTEOPOROSIS

REACTIONS (5)
  - ANXIETY [None]
  - DEPRESSION [None]
  - NAUSEA [None]
  - PANIC ATTACK [None]
  - SOMNOLENCE [None]
